FAERS Safety Report 5920762-1 (Version None)
Quarter: 2008Q4

REPORT INFORMATION
  Report Type: 
  Country: None (occurrence: None)
  Receive Date: 20081016
  Receipt Date: 20081013
  Transmission Date: 20090506
  Serious: Yes (Other)
  Sender: FDA-Public Use
  Company Number: GB-ROCHE-591504

PATIENT
  Sex: Male
  Weight: 121.1 kg

DRUGS (14)
  1. ORLISTAT [Suspect]
     Indication: OBESITY
     Route: 048
     Dates: start: 20080715
  2. ASPIRIN [Concomitant]
     Indication: THROMBOSIS PROPHYLAXIS
     Route: 048
  3. NICARDIPINE HYDROCHLORIDE [Concomitant]
     Route: 048
  4. DOXAZOSIN MESYLATE [Concomitant]
     Indication: HYPERTENSION
     Route: 048
  5. SIMVASTATIN [Concomitant]
     Route: 048
  6. BISOPROLOL FUMARATE [Concomitant]
     Indication: HYPERTENSION
     Route: 048
  7. METFORMIN [Concomitant]
     Route: 048
  8. ISOSORBIDE [Concomitant]
     Indication: ANGINA PECTORIS
     Route: 048
  9. RAMIPRIL [Concomitant]
     Indication: HYPERTENSION
     Route: 048
  10. NICORANDIL [Concomitant]
     Indication: ANGINA PECTORIS
     Route: 048
  11. FUROSEMIDE [Concomitant]
     Indication: HYPERTENSION
     Route: 048
  12. HUMALOG [Concomitant]
     Dosage: 110IU IN THE MORNING, 90IU IN THE EVENING
     Route: 058
  13. HUMALOG [Concomitant]
     Dosage: 100IU IN THE MORNING, 80IU IN THE EVENING
     Route: 058
  14. NITROGLYCERIN [Concomitant]
     Indication: ANGINA PECTORIS
     Dosage: 0.4MG/H
     Route: 062

REACTIONS (3)
  - CHEST PAIN [None]
  - HYPOGLYCAEMIA [None]
  - LOSS OF CONSCIOUSNESS [None]
